FAERS Safety Report 9567178 (Version 1)
Quarter: 2013Q3

REPORT INFORMATION
  Report Type: Spontaneous
  Country: US (occurrence: US)
  Receive Date: 20130930
  Receipt Date: 20130930
  Transmission Date: 20140515
  Serious: No
  Sender: FDA-Public Use
  Company Number: US-AMGEN-USASP2012062002

PATIENT
  Age: 57 Year
  Sex: Female

DRUGS (9)
  1. ENBREL [Suspect]
     Indication: RHEUMATOID ARTHRITIS
     Dosage: 50 MG, QWK
     Route: 058
  2. LOSARTAN [Concomitant]
     Dosage: 25 MG, UNK
  3. AMLODIPINE [Concomitant]
     Dosage: 2.5 MG, UNK
  4. B COMPLEX                          /00212701/ [Concomitant]
     Dosage: UNK
  5. TRAMADOL HCL [Concomitant]
     Dosage: 50 MG, UNK
  6. CALCIUM [Concomitant]
     Dosage: 600 UNK, UNK
  7. BONIVA [Concomitant]
     Dosage: 2.5 MG, UNK
  8. AMBIEN CR [Concomitant]
     Dosage: 12.5 MG, UNK
  9. ESSENTIAL [Concomitant]
     Dosage: UNK

REACTIONS (1)
  - Hypertension [Unknown]
